FAERS Safety Report 11501428 (Version 1)
Quarter: 2015Q3

REPORT INFORMATION
  Report Type: Spontaneous
  Country: US (occurrence: US)
  Receive Date: 20150914
  Receipt Date: 20150914
  Transmission Date: 20151125
  Serious: No
  Sender: FDA-Public Use
  Company Number: US-009507513-1509USA000335

PATIENT
  Sex: Female

DRUGS (1)
  1. IMPLANON [Suspect]
     Active Substance: ETONOGESTREL
     Indication: CONTRACEPTION
     Dosage: ONE ROD EVERY THREE YEARS
     Route: 059
     Dates: start: 201102

REACTIONS (5)
  - Incorrect drug administration duration [Unknown]
  - Mood swings [Unknown]
  - Abnormal loss of weight [Unknown]
  - Menopausal symptoms [Unknown]
  - Oestrogen deficiency [Unknown]
